FAERS Safety Report 19377355 (Version 1)
Quarter: 2021Q2

REPORT INFORMATION
  Report Type: Report from Study
  Country: KR (occurrence: KR)
  Receive Date: 20210605
  Receipt Date: 20210605
  Transmission Date: 20210717
  Serious: Yes (Hospitalization, Other)
  Sender: FDA-Public Use
  Company Number: KR-AMGEN INC.-KORCT2021083850

PATIENT
  Age: 73 Year
  Sex: Female

DRUGS (36)
  1. DECITABINE. [Concomitant]
     Active Substance: DECITABINE
     Indication: PRODUCT USED FOR UNKNOWN INDICATION
     Dosage: 20 UNK, QD
     Dates: start: 20140923, end: 20140927
  2. DECITABINE. [Concomitant]
     Active Substance: DECITABINE
     Dosage: 20 UNK, QD
     Dates: start: 20141208, end: 20141212
  3. POSACONAZOLE [Concomitant]
     Active Substance: POSACONAZOLE
     Indication: PRODUCT USED FOR UNKNOWN INDICATION
     Dosage: 5 UNK, QD
     Dates: start: 20140923, end: 20141020
  4. RIFAMPICIN [Concomitant]
     Active Substance: RIFAMPIN
     Indication: PRODUCT USED FOR UNKNOWN INDICATION
     Dosage: 450 MILLIGRAM, QD
     Dates: start: 20141021, end: 20141028
  5. VANCOMYCIN [Concomitant]
     Active Substance: VANCOMYCIN
     Dosage: 1200 MILLIGRAM, QD
     Dates: start: 20141010, end: 20141014
  6. FILGRASTIM [Suspect]
     Active Substance: FILGRASTIM
     Indication: PRODUCT USED FOR UNKNOWN INDICATION
     Dosage: UNK UNK, QD
     Route: 065
     Dates: start: 20141110, end: 20141119
  7. FILGRASTIM [Suspect]
     Active Substance: FILGRASTIM
     Dosage: UNK UNK, QD
     Route: 065
     Dates: start: 20141219, end: 20150103
  8. DECITABINE. [Concomitant]
     Active Substance: DECITABINE
     Dosage: 20 UNK, QD
     Dates: start: 20150401, end: 20150401
  9. METFORMIN [Concomitant]
     Active Substance: METFORMIN HYDROCHLORIDE
     Dosage: 500 MILLIGRAM, QD
     Dates: start: 20150213
  10. FILGRASTIM [Suspect]
     Active Substance: FILGRASTIM
     Dosage: UNK UNK, QD
     Route: 065
     Dates: start: 20150316, end: 20150317
  11. FILGRASTIM [Suspect]
     Active Substance: FILGRASTIM
     Dosage: UNK UNK, QD
     Route: 065
     Dates: start: 20150319, end: 20150319
  12. FILGRASTIM [Suspect]
     Active Substance: FILGRASTIM
     Dosage: UNK UNK, QD
     Route: 065
     Dates: start: 20150323, end: 20150323
  13. FILGRASTIM [Suspect]
     Active Substance: FILGRASTIM
     Dosage: UNK UNK, QD
     Route: 065
     Dates: start: 20150325, end: 20150325
  14. CEFEPIME [Concomitant]
     Active Substance: CEFEPIME HYDROCHLORIDE
     Dosage: 2000 MILLIGRAM, QD
     Dates: start: 20141225, end: 20141231
  15. CEFEPIME [Concomitant]
     Active Substance: CEFEPIME HYDROCHLORIDE
     Dosage: 2000 MILLIGRAM, QD
     Dates: start: 20150126, end: 20150210
  16. REPAGLINIDE. [Concomitant]
     Active Substance: REPAGLINIDE
     Indication: PRODUCT USED FOR UNKNOWN INDICATION
     Dosage: 2 MILLIGRAM, QD
     Dates: start: 20141126
  17. FILGRASTIM [Suspect]
     Active Substance: FILGRASTIM
     Dosage: UNK UNK, QD
     Route: 065
     Dates: start: 20150126, end: 20180210
  18. DECITABINE. [Concomitant]
     Active Substance: DECITABINE
     Dosage: 20 UNK, QD
     Dates: start: 20150223, end: 20150227
  19. CEFEPIME [Concomitant]
     Active Substance: CEFEPIME HYDROCHLORIDE
     Indication: PRODUCT USED FOR UNKNOWN INDICATION
     Dosage: 2000 MILLIGRAM, QD
     Dates: start: 20140919, end: 20140925
  20. MEQUITAZINE [Concomitant]
     Active Substance: MEQUITAZINE
     Indication: PRODUCT USED FOR UNKNOWN INDICATION
     Dosage: 5 MILLIGRAM, QD
     Dates: start: 20141025, end: 20141030
  21. FILGRASTIM [Suspect]
     Active Substance: FILGRASTIM
     Dosage: UNK UNK, QD
     Route: 065
     Dates: start: 20150311, end: 20150314
  22. CEFEPIME [Concomitant]
     Active Substance: CEFEPIME HYDROCHLORIDE
     Dosage: 2000 MILLIGRAM, QD
     Dates: start: 20141109, end: 20141109
  23. LEVOTHYROXINE SODIUM. [Concomitant]
     Active Substance: LEVOTHYROXINE SODIUM
     Dosage: 0.5 MILLIGRAM, QD
     Dates: end: 20141003
  24. DECITABINE. [Concomitant]
     Active Substance: DECITABINE
     Dosage: 20 UNK, QD
     Dates: start: 20150112, end: 20150116
  25. TEICOPLANIN [Concomitant]
     Active Substance: TEICOPLANIN
     Indication: PRODUCT USED FOR UNKNOWN INDICATION
     Dosage: 270 MILLIGRAM, QD
     Dates: start: 20141022, end: 20141028
  26. TEICOPLANIN [Concomitant]
     Active Substance: TEICOPLANIN
     Dosage: 200 MILLIGRAM
     Dates: start: 20141110, end: 20141119
  27. VANCOMYCIN [Concomitant]
     Active Substance: VANCOMYCIN
     Dosage: 1000 MILLIGRAM, QD
     Dates: start: 20141015, end: 20141019
  28. ZOLPIDEM [Concomitant]
     Active Substance: ZOLPIDEM TARTRATE
     Indication: PRODUCT USED FOR UNKNOWN INDICATION
     Dosage: 6.25 MILLIGRAM, QD
     Dates: start: 20150130
  29. GABAPENTIN. [Concomitant]
     Active Substance: GABAPENTIN
     Indication: PRODUCT USED FOR UNKNOWN INDICATION
     Dosage: 100 MILLIGRAM, QD
     Dates: start: 20140926, end: 20141015
  30. IMIPENEM AND CILASTATIN [Concomitant]
     Active Substance: CILASTATIN SODIUM\IMIPENEM
     Indication: PRODUCT USED FOR UNKNOWN INDICATION
     Dosage: 500 MILLIGRAM, QD
     Dates: start: 20141002, end: 20141011
  31. METFORMIN [Concomitant]
     Active Substance: METFORMIN HYDROCHLORIDE
     Indication: PRODUCT USED FOR UNKNOWN INDICATION
     Dosage: 500 MILLIGRAM, QD
     Dates: start: 20140922, end: 20141015
  32. VANCOMYCIN [Concomitant]
     Active Substance: VANCOMYCIN
     Indication: PRODUCT USED FOR UNKNOWN INDICATION
     Dosage: 1000 MILLIGRAM, QD
     Dates: start: 20141005, end: 20141009
  33. VANCOMYCIN [Concomitant]
     Active Substance: VANCOMYCIN
     Dosage: 1200 MILLIGRAM, QD
     Dates: start: 20141020, end: 20141022
  34. DECITABINE. [Concomitant]
     Active Substance: DECITABINE
     Dosage: 20 UNK, QD
     Dates: start: 20141020, end: 20141024
  35. LEVOTHYROXINE SODIUM. [Concomitant]
     Active Substance: LEVOTHYROXINE SODIUM
     Indication: PRODUCT USED FOR UNKNOWN INDICATION
     Dosage: 25 UNK
     Dates: start: 20141003
  36. LINEZOLID. [Concomitant]
     Active Substance: LINEZOLID
     Indication: PRODUCT USED FOR UNKNOWN INDICATION
     Dosage: 600 MILLIGRAM, QD
     Dates: start: 20141027, end: 20141110

REACTIONS (4)
  - Neutropenia [Recovered/Resolved]
  - Subcutaneous abscess [Recovered/Resolved]
  - Ankylosing spondylitis [Recovered/Resolved]
  - Device related infection [Recovered/Resolved]

NARRATIVE: CASE EVENT DATE: 20141001
